FAERS Safety Report 25663991 (Version 1)
Quarter: 2025Q3

REPORT INFORMATION
  Report Type: Report from Study
  Country: US (occurrence: US)
  Receive Date: 20250811
  Receipt Date: 20250811
  Transmission Date: 20251021
  Serious: Yes (Other)
  Sender: TAKEDA
  Company Number: US-TAKEDA-2025TUS070539

PATIENT
  Sex: Female
  Weight: 67.12 kg

DRUGS (14)
  1. HUMAN IMMUNOGLOBULIN G [Suspect]
     Active Substance: HUMAN IMMUNOGLOBULIN G
     Indication: Immunodeficiency common variable
     Dosage: 30 GRAM, Q4WEEKS
  2. ACETAMINOPHEN [Concomitant]
     Active Substance: ACETAMINOPHEN
  3. EPINEPHRINE [Concomitant]
     Active Substance: EPINEPHRINE
  4. OMEPRAZOLE [Concomitant]
     Active Substance: OMEPRAZOLE
  5. QUETIAPINE FUMARATE [Concomitant]
     Active Substance: QUETIAPINE FUMARATE
  6. SODIUM CHLORIDE [Concomitant]
     Active Substance: SODIUM CHLORIDE
  7. BUPROPION [Concomitant]
     Active Substance: BUPROPION
  8. LIDOCAINE [Concomitant]
     Active Substance: LIDOCAINE
  9. LEVOTHYROXINE SODIUM [Concomitant]
     Active Substance: LEVOTHYROXINE SODIUM
  10. MELATONIN [Concomitant]
     Active Substance: MELATONIN
  11. FENOFIBRATE [Concomitant]
     Active Substance: FENOFIBRATE
  12. DIPHENHYDRAMINE HYDROCHLORIDE [Concomitant]
     Active Substance: DIPHENHYDRAMINE HYDROCHLORIDE
  13. IBUPROFEN [Concomitant]
     Active Substance: IBUPROFEN
  14. NADOLOL [Concomitant]
     Active Substance: NADOLOL

REACTIONS (4)
  - Thrombosis [Unknown]
  - Blood pressure decreased [Unknown]
  - Disorientation [Unknown]
  - Pain in extremity [Unknown]
